FAERS Safety Report 24528130 (Version 1)
Quarter: 2024Q4

REPORT INFORMATION
  Report Type: Spontaneous
  Country: US (occurrence: None)
  Receive Date: 20241018
  Receipt Date: 20241018
  Transmission Date: 20250114
  Serious: No
  Sender: Public
  Company Number: None

PATIENT
  Age: 78 Year
  Sex: Male

DRUGS (1)
  1. DRONEDARONE [Suspect]
     Active Substance: DRONEDARONE
     Indication: Atrial fibrillation
     Dates: start: 20240313, end: 20240415

REACTIONS (3)
  - Oedema peripheral [None]
  - Walking aid user [None]
  - Therapy cessation [None]

NARRATIVE: CASE EVENT DATE: 20240415
